FAERS Safety Report 19071644 (Version 1)
Quarter: 2021Q1

REPORT INFORMATION
  Report Type: Spontaneous
  Country: DE (occurrence: DE)
  Receive Date: 20210330
  Receipt Date: 20210330
  Transmission Date: 20210420
  Serious: Yes (Hospitalization)
  Sender: FDA-Public Use
  Company Number: DE-TEVA-2021-DE-1894481

PATIENT
  Age: 83 Year
  Sex: Male

DRUGS (12)
  1. PIPAMPERON [Concomitant]
     Active Substance: PIPAMPERONE HYDROCHLORIDE
     Dosage: .5 DOSAGE FORMS DAILY; 40 MG, 0?0?0?0.5
  2. CYANOCOBALAMIN. [Concomitant]
     Active Substance: CYANOCOBALAMIN
     Dosage: 1 X MONTH, AMPOULES
     Route: 058
  3. SIMVASTATIN. [Concomitant]
     Active Substance: SIMVASTATIN
     Dosage: 20 MILLIGRAM DAILY;  0?0?1?0
  4. APIXABAN [Suspect]
     Active Substance: APIXABAN
     Dosage: 5 MG, PAUSED SINCE 17012021
  5. EZETIMIB [Concomitant]
     Active Substance: EZETIMIBE
     Dosage: 10 MILLIGRAM DAILY; 0?0?1?0
  6. FINASTERID [Concomitant]
     Active Substance: FINASTERIDE
     Dosage: 5 MILLIGRAM DAILY; 1?0?0?0
  7. SPIRONOLACTON [Concomitant]
     Active Substance: SPIRONOLACTONE
     Dosage: 100 MILLIGRAM DAILY; 1?1?0?0
  8. TAMSULOSIN [Concomitant]
     Active Substance: TAMSULOSIN
     Dosage: .8 MILLIGRAM DAILY; 1?1?0?0
  9. CARVEDILOL. [Concomitant]
     Active Substance: CARVEDILOL
     Dosage: 12.5 MILLIGRAM DAILY; 1?0?1?0
  10. PANTOPRAZOL [Concomitant]
     Active Substance: PANTOPRAZOLE SODIUM
     Dosage: 40 MILLIGRAM DAILY; 0?0?1?0
  11. FUROSEMID [Concomitant]
     Active Substance: FUROSEMIDE
     Dosage: 80 MILLIGRAM DAILY; 1?1?0?0
  12. CLOPIDOGREL [Suspect]
     Active Substance: CLOPIDOGREL BISULFATE
     Dosage: 75 MILLIGRAM DAILY; 0?1?0?0

REACTIONS (3)
  - Haematochezia [Unknown]
  - Dizziness [Unknown]
  - Anaemia [Unknown]
